FAERS Safety Report 22663140 (Version 4)
Quarter: 2023Q4

REPORT INFORMATION
  Report Type: Spontaneous
  Country: EG (occurrence: EG)
  Receive Date: 20230703
  Receipt Date: 20231109
  Transmission Date: 20240109
  Serious: Yes (Hospitalization, Other)
  Sender: FDA-Public Use
  Company Number: EG-JNJFOC-20230639128

PATIENT
  Age: 51 Year
  Sex: Male

DRUGS (1)
  1. REMICADE [Suspect]
     Active Substance: INFLIXIMAB
     Indication: Colitis ulcerative
     Dosage: 9 DOSES (FOR ABOUT YEAR AND HALF)
     Route: 041

REACTIONS (5)
  - Tuberculosis [Unknown]
  - Colitis ulcerative [Unknown]
  - Eye pain [Unknown]
  - Chromaturia [Unknown]
  - Drug ineffective [Unknown]
